FAERS Safety Report 7098883-2 (Version None)
Quarter: 2010Q4

REPORT INFORMATION
  Report Type: 
  Country: None (occurrence: None)
  Receive Date: 20101112
  Receipt Date: 20101105
  Transmission Date: 20110411
  Serious: Yes (Death, Other)
  Sender: FDA-Public Use
  Company Number: US-ROCHE-739641

PATIENT
  Age: 58 Year
  Sex: Female
  Weight: 107.9 kg

DRUGS (11)
  1. KLONOPIN [Suspect]
     Route: 065
  2. CHANTIX [Suspect]
     Route: 048
     Dates: start: 20071220
  3. LYRICA [Suspect]
     Indication: FIBROMYALGIA
     Route: 048
     Dates: start: 20080401
  4. ELAVIL [Suspect]
     Dosage: TAKEN AT BEDTIME
     Route: 065
  5. FLEXERIL [Suspect]
     Route: 065
  6. SPIRIVA [Concomitant]
  7. ZOLOFT [Concomitant]
  8. OXYCONTIN [Concomitant]
  9. SKELAXIN [Concomitant]
  10. NEURONTIN [Concomitant]
  11. ZETIA [Concomitant]
     Route: 048
     Dates: start: 20080606

REACTIONS (5)
  - ACCIDENTAL DEATH [None]
  - ANTIDEPRESSANT DRUG LEVEL ABOVE THERAPEUTIC [None]
  - DRUG LEVEL ABOVE THERAPEUTIC [None]
  - MUSCLE RELAXANT DRUG LEVEL ABOVE THERAPEUTIC [None]
  - URINARY TRACT INFECTION [None]
